FAERS Safety Report 6143550-2 (Version None)
Quarter: 2009Q2

REPORT INFORMATION
  Report Type: 
  Country: None (occurrence: None)
  Receive Date: 20090403
  Receipt Date: 20090326
  Transmission Date: 20091009
  Serious: Yes (Other)
  Sender: FDA-Public Use
  Company Number: DE-PFIZER INC-2009188977

PATIENT

DRUGS (2)
  1. ZELDOX [Suspect]
     Indication: SCHIZOTYPAL PERSONALITY DISORDER
     Dosage: 20MG+40MG PER DAY
     Route: 048
     Dates: start: 20090325
  2. REMERGIL [Concomitant]
     Indication: DEPRESSION
     Dosage: 45MG/DAY
     Route: 048
     Dates: start: 20090101

REACTIONS (1)
  - FATIGUE [None]
